FAERS Safety Report 24021524 (Version 1)
Quarter: 2024Q2

REPORT INFORMATION
  Report Type: Report from Study
  Country: IT (occurrence: IT)
  Receive Date: 20240627
  Receipt Date: 20240627
  Transmission Date: 20240715
  Serious: No
  Sender: FDA-Public Use
  Company Number: IT-ROCHE-3445516

PATIENT
  Age: 55 Year
  Sex: Male

DRUGS (12)
  1. GLOFITAMAB [Suspect]
     Active Substance: GLOFITAMAB
     Indication: Diffuse large B-cell lymphoma
     Route: 065
     Dates: start: 20231004
  2. GLOFITAMAB [Suspect]
     Active Substance: GLOFITAMAB
     Route: 065
     Dates: start: 20231011
  3. OBINUTUZUMAB [Suspect]
     Active Substance: OBINUTUZUMAB
     Indication: Diffuse large B-cell lymphoma
     Dosage: AT FIXED RATE 25 MG/H
     Route: 042
     Dates: start: 20230927
  4. OBINUTUZUMAB [Suspect]
     Active Substance: OBINUTUZUMAB
     Dosage: START RATE 50 MG/H, INCREASED TO 50 MG/H EVERY 30 MIN UP TO 400 MG/H
     Route: 042
     Dates: start: 20230928
  5. VALACYCLOVIR HYDROCHLORIDE [Concomitant]
     Active Substance: VALACYCLOVIR HYDROCHLORIDE
     Dosage: 1000 MG/DAY
     Route: 048
  6. SULFAMETHOXAZOLE\TRIMETHOPRIM [Concomitant]
     Active Substance: SULFAMETHOXAZOLE\TRIMETHOPRIM
     Dosage: 800/160 MG X 3/WEEK
     Route: 048
  7. PANTOPRAZOLE [Concomitant]
     Active Substance: PANTOPRAZOLE
     Route: 048
  8. ALLOPURINOL [Concomitant]
     Active Substance: ALLOPURINOL
     Dosage: 300 MG/DAY
     Route: 048
  9. ENOXAPARIN SODIUM [Concomitant]
     Active Substance: ENOXAPARIN SODIUM
     Dosage: 6000 U
     Route: 058
  10. DEXAMETHASONE [Concomitant]
     Active Substance: DEXAMETHASONE
  11. ACETAMINOPHEN [Concomitant]
     Active Substance: ACETAMINOPHEN
  12. CHLORPHENIRAMINE MALEATE [Concomitant]
     Active Substance: CHLORPHENIRAMINE MALEATE

REACTIONS (1)
  - Cytokine release syndrome [Unknown]

NARRATIVE: CASE EVENT DATE: 20231005
